FAERS Safety Report 4635827-4 (Version None)
Quarter: 2005Q2

REPORT INFORMATION
  Report Type: 
  Country: None (occurrence: None)
  Receive Date: 20050413
  Receipt Date: 20050324
  Transmission Date: 20051028
  Serious: Yes (Hospitalization)
  Sender: FDA-Public Use
  Company Number: REM_00092_2005

PATIENT
  Age: 43 Year
  Sex: Female

DRUGS (1)
  1. REMODULIN [Suspect]
     Indication: PULMONARY HYPERTENSION
     Dosage: 10 NG/KG/MIN CONTINUOUS IV
     Route: 042
     Dates: start: 19990501

REACTIONS (1)
  - INFUSION SITE INFECTION [None]
